FAERS Safety Report 7418047 (Version 5)
Quarter: 2015Q4

REPORT INFORMATION
  Report Type: Spontaneous
  Country: US (occurrence: US)
  Receive Date: 20100614
  Receipt Date: 20151120
  Transmission Date: 20160305
  Serious: Yes (Hospitalization)
  Sender: FDA-Public Use
  Company Number: US-BAYER-201024697NA

PATIENT
  Age: 22 Year
  Sex: Female
  Weight: 56.69 kg

DRUGS (3)
  1. YAZ [Suspect]
     Active Substance: DROSPIRENONE\ETHINYL ESTRADIOL
     Indication: CONTRACEPTION
     Dosage: UNK
     Route: 048
     Dates: start: 200801, end: 200804
  2. NAPROXEN. [Concomitant]
     Active Substance: NAPROXEN
  3. LEVAQUIN [Concomitant]
     Active Substance: LEVOFLOXACIN
     Dosage: 750 MG, 1/2 DAILY
     Route: 048
     Dates: start: 20080108

REACTIONS (3)
  - Cerebrovascular accident [None]
  - Ischaemic stroke [None]
  - Cerebral artery thrombosis [None]

NARRATIVE: CASE EVENT DATE: 20080421
